FAERS Safety Report 4276527-2 (Version None)
Quarter: 2004Q1

REPORT INFORMATION
  Report Type: 
  Country: None (occurrence: None)
  Receive Date: 20040120
  Receipt Date: 20040107
  Transmission Date: 20041129
  Serious: Yes (Hospitalization, Other)
  Sender: FDA-Public Use
  Company Number: 2004001352

PATIENT
  Age: 58 Year
  Sex: Female

DRUGS (2)
  1. LITHIUM CARBONATE [Suspect]
     Indication: ILL-DEFINED DISORDER
  2. CELECOXIB (CELECOXIB) [Suspect]
     Indication: ILL-DEFINED DISORDER
     Dosage: 800 MG(DAILY)

REACTIONS (8)
  - ABDOMINAL PAIN [None]
  - ANTIDEPRESSANT DRUG LEVEL INCREASED [None]
  - DIALYSIS [None]
  - DIZZINESS [None]
  - DRUG INTERACTION POTENTIATION [None]
  - DYSPNOEA [None]
  - HYPOTENSION [None]
  - VOMITING [None]
